FAERS Safety Report 5334730-4 (Version None)
Quarter: 2007Q2

REPORT INFORMATION
  Report Type: 
  Country: None (occurrence: None)
  Receive Date: 20070525
  Receipt Date: 20070523
  Transmission Date: 20071010
  Serious: Yes (Life-Threatening)
  Sender: FDA-Public Use
  Company Number: ES-JNJFOC-20070503291

PATIENT
  Age: 20 Year
  Sex: Female

DRUGS (2)
  1. TOPAMAX [Suspect]
     Indication: DRUG USE FOR UNKNOWN INDICATION
     Dosage: 60 100 MG TABLETS TAKEN AT ONE TIME
     Route: 048
  2. VANDRAL RETARD [Suspect]
     Indication: CHLAMYDIAL INFECTION
     Dosage: 30 150 MG CAPSULES TAKEN AT ONE TIME
     Route: 048

REACTIONS (3)
  - DEAFNESS [None]
  - MULTIPLE DRUG OVERDOSE INTENTIONAL [None]
  - TINNITUS [None]
